FAERS Safety Report 18579707 (Version 2)
Quarter: 2022Q2

REPORT INFORMATION
  Report Type: Other
  Country: BR (occurrence: None)
  Receive Date: 20201204
  Receipt Date: 20220526
  Transmission Date: 20220721
  Serious: Yes (Hospitalization, Other)
  Sender: FDA-Public Use
  Company Number: BR-ROCHE-2714667

PATIENT
  Sex: Male
  Weight: 58 kg

DRUGS (4)
  1. OCREVUS [Suspect]
     Active Substance: OCRELIZUMAB
     Indication: Multiple sclerosis
     Dosage: 300 MG/10ML
     Route: 065
     Dates: start: 20191016
  2. OCREVUS [Suspect]
     Active Substance: OCRELIZUMAB
     Dosage: SUBSEQUENT DOSE ON 11-MAY-2020
     Route: 065
     Dates: start: 20191030
  3. CYCLOBENZAPRINE [Concomitant]
     Active Substance: CYCLOBENZAPRINE
  4. CYCLOBENZAPRINE [Concomitant]
     Active Substance: CYCLOBENZAPRINE

REACTIONS (8)
  - Haematuria [Unknown]
  - Hemiparesis [Not Recovered/Not Resolved]
  - Neurogenic bladder [Unknown]
  - Drug ineffective [Unknown]
  - Muscle atrophy [Not Recovered/Not Resolved]
  - Musculoskeletal disorder [Unknown]
  - Anaemia [Unknown]
  - Urinary tract infection [Unknown]
